FAERS Safety Report 23841957 (Version 1)
Quarter: 2024Q2

REPORT INFORMATION
  Report Type: Report from Study
  Country: AU (occurrence: AU)
  Receive Date: 20240510
  Receipt Date: 20240510
  Transmission Date: 20240715
  Serious: Yes (Hospitalization)
  Sender: FDA-Public Use
  Company Number: AU-MYLANLABS-2024M1041726

PATIENT
  Age: 70 Year
  Sex: Male

DRUGS (4)
  1. BETAHISTINE [Suspect]
     Active Substance: BETAHISTINE
     Indication: Meniere^s disease
     Dosage: UNK
     Route: 048
  2. DEXAMETHASONE [Suspect]
     Active Substance: DEXAMETHASONE
     Indication: Meniere^s disease
     Dosage: UNK (10 TIMES, INTRATYMPANIC)
     Route: 065
  3. METHYLCOBALAMIN [Suspect]
     Active Substance: METHYLCOBALAMIN
     Indication: Meniere^s disease
     Dosage: UNK
     Route: 065
  4. SODIUM ESCINATE [Suspect]
     Active Substance: SODIUM ESCINATE
     Indication: Meniere^s disease
     Dosage: UNK (DRIP)
     Route: 042

REACTIONS (2)
  - Drug ineffective [Unknown]
  - Off label use [Unknown]
